FAERS Safety Report 8507250 (Version 2)
Quarter: 2012Q4

REPORT INFORMATION
  Report Type: 
  Country: US (occurrence: US)
  Receive Date: 20120412
  Receipt Date: 20121120
  Transmission Date: 20130627
  Serious: No
  Sender: FDA-Public Use
  Company Number: US-ASTRAZENECA-2012SE08901

PATIENT
  Age: 64 Year
  Sex: Female

DRUGS (3)
  1. NEXIUM [Suspect]
     Route: 048
  2. PANTOPRAZOLE [Suspect]
     Route: 065
  3. SUCRALFATE [Suspect]
     Route: 065

REACTIONS (5)
  - Pain [Unknown]
  - Gastric ulcer [Unknown]
  - Feeling abnormal [Unknown]
  - Epigastric discomfort [Unknown]
  - Intentional drug misuse [Unknown]
